FAERS Safety Report 10911517 (Version 1)
Quarter: 2015Q1

REPORT INFORMATION
  Report Type: Spontaneous
  Country: SK (occurrence: SK)
  Receive Date: 20150313
  Receipt Date: 20150313
  Transmission Date: 20150721
  Serious: Yes (Life-Threatening, Other)
  Sender: FDA-Public Use
  Company Number: SK-ROCHE-1550147

PATIENT
  Sex: Female

DRUGS (1)
  1. BEVACIZUMAB [Suspect]
     Active Substance: BEVACIZUMAB
     Indication: OVARIAN CANCER
     Route: 042

REACTIONS (5)
  - Proteinuria [Unknown]
  - Hypertension [Unknown]
  - Epistaxis [Unknown]
  - Toxicity to various agents [Unknown]
  - Embolism [Unknown]
